FAERS Safety Report 4991018-9 (Version None)
Quarter: 2006Q2

REPORT INFORMATION
  Report Type: 
  Country: None (occurrence: None)
  Receive Date: 20060503
  Receipt Date: 20051207
  Transmission Date: 20061013
  Serious: Yes (Hospitalization, Disabling)
  Sender: FDA-Public Use
  Company Number: US-MERCK-0512USA01412

PATIENT
  Age: 53 Year
  Sex: Female
  Weight: 100 kg

DRUGS (5)
  1. VIOXX [Suspect]
     Indication: OSTEOARTHRITIS
     Route: 048
     Dates: start: 20000101, end: 20040901
  2. VIOXX [Suspect]
     Indication: TENDONITIS
     Route: 048
     Dates: start: 20000101, end: 20040901
  3. SYNTHROID [Concomitant]
     Route: 048
  4. ATENOLOL [Concomitant]
     Route: 048
  5. ZETIA [Concomitant]
     Route: 048

REACTIONS (22)
  - ACUTE MYOCARDIAL INFARCTION [None]
  - ALANINE AMINOTRANSFERASE INCREASED [None]
  - BRONCHITIS [None]
  - CARPAL TUNNEL SYNDROME [None]
  - CONDITION AGGRAVATED [None]
  - CORONARY ARTERY DISEASE [None]
  - ELECTROCARDIOGRAM ST SEGMENT DEPRESSION [None]
  - ELECTROCARDIOGRAM ST SEGMENT ELEVATION [None]
  - EMOTIONAL DISORDER [None]
  - FALL [None]
  - HYPERTENSION [None]
  - MENTAL DISORDER [None]
  - METRORRHAGIA [None]
  - MYALGIA [None]
  - MYOCARDIAL INFARCTION [None]
  - OBESITY [None]
  - PLANTAR FASCIITIS [None]
  - RHINITIS ALLERGIC [None]
  - SINUS CONGESTION [None]
  - TENDONITIS [None]
  - TREATMENT NONCOMPLIANCE [None]
  - TRICUSPID VALVE INCOMPETENCE [None]
